FAERS Safety Report 8309223-2 (Version None)
Quarter: 2012Q2

REPORT INFORMATION
  Report Type: 
  Country: None (occurrence: None)
  Receive Date: 20120424
  Receipt Date: 20120412
  Transmission Date: 20120825
  Serious: Yes (Other)
  Sender: FDA-Public Use
  Company Number: BR-ELI_LILLY_AND_COMPANY-BR201108003634

PATIENT
  Sex: Female
  Weight: 86 kg

DRUGS (2)
  1. BYETTA [Suspect]
     Indication: TYPE 2 DIABETES MELLITUS
     Dosage: 5 UG, BID
     Route: 058
     Dates: start: 20110601
  2. BYETTA [Suspect]
     Dosage: 10 UG, BID
     Route: 058
     Dates: end: 20110801

REACTIONS (11)
  - NAUSEA [None]
  - ABDOMINAL DISTENSION [None]
  - ABDOMINAL RIGIDITY [None]
  - GLYCOSYLATED HAEMOGLOBIN DECREASED [None]
  - INTENTIONAL DRUG MISUSE [None]
  - DRUG INEFFECTIVE [None]
  - FEELING ABNORMAL [None]
  - DEPRESSION [None]
  - HYPERGLYCAEMIA [None]
  - ABDOMINAL PAIN [None]
  - VOMITING [None]
